FAERS Safety Report 26107884 (Version 1)
Quarter: 2025Q4

REPORT INFORMATION
  Report Type: Spontaneous
  Country: US (occurrence: None)
  Receive Date: 20251128
  Receipt Date: 20251128
  Transmission Date: 20260117
  Serious: Yes (Hospitalization)
  Sender: FDA-CTU
  Company Number: None

PATIENT
  Sex: Female

DRUGS (11)
  1. LENALIDOMIDE [Suspect]
     Active Substance: LENALIDOMIDE
     Indication: Plasma cell myeloma
     Dosage: FREQUENCY : DAILY;?
     Route: 048
     Dates: start: 20250812
  2. ACETAMIN TAB 325MG [Concomitant]
  3. ALBUTEROL AER HFA [Concomitant]
  4. ASPIRIN [Concomitant]
     Active Substance: ASPIRIN
  5. HYDROMORPHON TAB 2MG [Concomitant]
  6. LIDO/PRILOCN CRE 2.5-2.5% [Concomitant]
  7. NALOXONE HCL SPR 4MG [Concomitant]
  8. ONDANSETRON TAB 8MG ODT [Concomitant]
  9. SERTRALINE TAB 50MG [Concomitant]
  10. VELCADE [Concomitant]
     Active Substance: BORTEZOMIB
  11. ZOLEDRONIC ACID [Concomitant]
     Active Substance: ZOLEDRONIC ACID

REACTIONS (1)
  - Therapy interrupted [None]
